FAERS Safety Report 23338749 (Version 1)
Quarter: 2023Q4

REPORT INFORMATION
  Report Type: Spontaneous
  Country: RU (occurrence: None)
  Receive Date: 20231226
  Receipt Date: 20231226
  Transmission Date: 20240110
  Serious: Yes (Other)
  Sender: FDA-Public Use
  Company Number: 2023A292389

PATIENT
  Age: 50 Year
  Sex: Male

DRUGS (1)
  1. IMFINZI [Suspect]
     Active Substance: DURVALUMAB
     Indication: Non-small cell lung cancer
     Dosage: UNKNOWN

REACTIONS (3)
  - Malignant neoplasm progression [Unknown]
  - Metastases to central nervous system [Unknown]
  - Metastases to liver [Unknown]
